FAERS Safety Report 6308486-2 (Version None)
Quarter: 2009Q3

REPORT INFORMATION
  Report Type: 
  Country: None (occurrence: None)
  Receive Date: 20090813
  Receipt Date: 20090803
  Transmission Date: 20100115
  Serious: Yes (Hospitalization)
  Sender: FDA-Public Use
  Company Number: AU-PURDUE-USA-2009-0039222

PATIENT
  Sex: Male

DRUGS (7)
  1. OXYCONTIN [Suspect]
     Indication: DRUG USE FOR UNKNOWN INDICATION
     Dosage: 20 MG, DAILY
     Route: 048
     Dates: start: 20090425, end: 20090507
  2. ENDONE [Suspect]
     Indication: DRUG USE FOR UNKNOWN INDICATION
     Route: 048
  3. KEFLIN NEUTRO [Suspect]
     Indication: DRUG USE FOR UNKNOWN INDICATION
  4. OMEPRAZOLE [Suspect]
     Indication: PROPHYLAXIS
     Dosage: 40 MG, DAILY
     Route: 048
     Dates: start: 20090407, end: 20090512
  5. VANCOMYCIN [Suspect]
     Indication: OSTEOMYELITIS
     Dosage: 2 G, DAILY
     Route: 048
     Dates: start: 20090506, end: 20090521
  6. LINCOCIN                           /00033602/ [Concomitant]
  7. NORMISON [Concomitant]

REACTIONS (4)
  - ATAXIA [None]
  - DYSARTHRIA [None]
  - ENTEROCOCCAL INFECTION [None]
  - HALLUCINATION, VISUAL [None]
